FAERS Safety Report 9851404 (Version 2)
Quarter: 2014Q1

REPORT INFORMATION
  Report Type: Spontaneous
  Country: AU (occurrence: AU)
  Receive Date: 20140129
  Receipt Date: 20140312
  Transmission Date: 20141002
  Serious: Yes (Hospitalization, Other)
  Sender: FDA-Public Use
  Company Number: AU-009507513-1401AUS011529

PATIENT
  Sex: Female

DRUGS (1)
  1. EZETROL [Suspect]
     Dosage: UNK
     Route: 048

REACTIONS (5)
  - Myocardial infarction [Unknown]
  - Pain in extremity [Unknown]
  - Chest pain [Unknown]
  - Back pain [Unknown]
  - Dysarthria [Unknown]
